FAERS Safety Report 7451334-8 (Version None)
Quarter: 2011Q2

REPORT INFORMATION
  Report Type: 
  Country: None (occurrence: None)
  Receive Date: 20110502
  Receipt Date: 20110427
  Transmission Date: 20111010
  Serious: Yes (Hospitalization)
  Sender: FDA-Public Use
  Company Number: UY-B.I. PHARMACEUTICALS,INC./RIDGEFIELD-2011-RA-00026RA

PATIENT
  Age: 64 Year
  Sex: Female
  Weight: 75 kg

DRUGS (3)
  1. TECUATRO [Concomitant]
  2. DABIGATRAN ETEXILATE [Suspect]
     Indication: THROMBOSIS PROPHYLAXIS
     Dosage: 220 MG
     Dates: start: 20100316
  3. RANITIDINE [Concomitant]

REACTIONS (1)
  - DEEP VEIN THROMBOSIS [None]
